FAERS Safety Report 14129135 (Version 1)
Quarter: 2017Q4

REPORT INFORMATION
  Report Type: Spontaneous
  Country: US (occurrence: US)
  Receive Date: 20171026
  Receipt Date: 20171026
  Transmission Date: 20180321
  Serious: Yes (Hospitalization)
  Sender: FDA-Public Use
  Company Number: US-ANTARES PHARMA, INC.-2017-SPO-ME-0394

PATIENT
  Age: 6 Year
  Sex: Male
  Weight: 22.4 kg

DRUGS (19)
  1. METHOTREXATE. [Suspect]
     Active Substance: METHOTREXATE
     Dosage: 12 MG, UNK
     Route: 037
     Dates: start: 20170327
  2. RUXOLITINIB [Suspect]
     Active Substance: RUXOLITINIB
     Indication: ACUTE LYMPHOCYTIC LEUKAEMIA
     Dosage: 25 MG, BID
     Route: 048
     Dates: start: 20170123, end: 20170205
  3. LEVOFLOXACIN. [Concomitant]
     Active Substance: LEVOFLOXACIN
     Indication: PRODUCT USED FOR UNKNOWN INDICATION
     Dosage: UNK
     Dates: start: 20170303
  4. METHOTREXATE. [Suspect]
     Active Substance: METHOTREXATE
     Indication: ACUTE LYMPHOCYTIC LEUKAEMIA
     Dosage: 12 MG, PER PROTOCOL
     Route: 037
     Dates: start: 20170123, end: 20170206
  5. RUXOLITINIB [Suspect]
     Active Substance: RUXOLITINIB
     Dosage: 25 MG, BID
     Route: 048
     Dates: start: 20170327
  6. CYCLOPHOSPHAMIDE. [Suspect]
     Active Substance: CYCLOPHOSPHAMIDE
     Indication: ACUTE LYMPHOCYTIC LEUKAEMIA
     Dosage: 1000 MG/M2, UNK
     Route: 042
     Dates: start: 20170123, end: 20170123
  7. VINCRISTINE [Suspect]
     Active Substance: VINCRISTINE
     Dosage: 1.3 UNK, SINGLE
     Route: 042
     Dates: start: 20170327
  8. CYTARABINE. [Suspect]
     Active Substance: CYTARABINE
     Dosage: 64 MG, UNK
     Route: 042
  9. VINCRISTINE [Suspect]
     Active Substance: VINCRISTINE
     Dosage: 1.5 UNK, UNK
     Route: 042
     Dates: start: 20170206
  10. BACTRIM [Concomitant]
     Active Substance: SULFAMETHOXAZOLE\TRIMETHOPRIM
     Indication: PRODUCT USED FOR UNKNOWN INDICATION
     Dosage: UNK
     Dates: start: 20161220
  11. METHOTREXATE. [Suspect]
     Active Substance: METHOTREXATE
     Dosage: 4175 MG, UNK
     Route: 042
     Dates: start: 20170327
  12. CYTARABINE. [Suspect]
     Active Substance: CYTARABINE
     Indication: ACUTE LYMPHOCYTIC LEUKAEMIA
     Dosage: 75 MG/M2, UNK
     Route: 042
     Dates: start: 20170123, end: 20170202
  13. PEGASPARGASE [Suspect]
     Active Substance: PEGASPARGASE
     Indication: ACUTE LYMPHOCYTIC LEUKAEMIA
     Dosage: 2000 UNK, UNK
     Route: 042
     Dates: start: 20170206, end: 20170206
  14. LEUCOVORIN                         /00566701/ [Suspect]
     Active Substance: LEUCOVORIN
     Indication: LYMPHOCYTIC LEUKAEMIA
     Dosage: 15 MG, UNK
     Route: 048
     Dates: start: 20170329
  15. MERCAPTOPURINE. [Suspect]
     Active Substance: MERCAPTOPURINE
     Indication: ACUTE LYMPHOCYTIC LEUKAEMIA
     Dosage: 60 MG/M2, UNK
     Route: 048
     Dates: start: 20170123, end: 20170205
  16. MERCAPTOPURINE. [Suspect]
     Active Substance: MERCAPTOPURINE
     Dosage: 25 MG, UNK
     Route: 048
     Dates: start: 20170327
  17. VINCRISTINE [Suspect]
     Active Substance: VINCRISTINE
     Indication: ACUTE LYMPHOCYTIC LEUKAEMIA
     Dosage: 1.5 MG/M2, UNK
     Route: 042
     Dates: start: 20170206
  18. PEGASPARGASE [Suspect]
     Active Substance: PEGASPARGASE
     Dosage: 2175 IU, SINGLE
     Route: 042
  19. CYCLOPHOSPHAMIDE. [Suspect]
     Active Substance: CYCLOPHOSPHAMIDE
     Dosage: 860 UNK, UNK
     Route: 042
     Dates: start: 20170221

REACTIONS (3)
  - Human metapneumovirus test positive [Recovered/Resolved]
  - Pyrexia [Recovered/Resolved]
  - Febrile neutropenia [Recovered/Resolved]

NARRATIVE: CASE EVENT DATE: 20170211
